FAERS Safety Report 9582854 (Version 1)
Quarter: 2013Q4

REPORT INFORMATION
  Report Type: Spontaneous
  Country: US (occurrence: US)
  Receive Date: 20131002
  Receipt Date: 20131002
  Transmission Date: 20140711
  Serious: No
  Sender: FDA-Public Use
  Company Number: US-AMGEN-USASP2013042844

PATIENT
  Age: 34 Year
  Sex: Male

DRUGS (2)
  1. ENBREL [Suspect]
     Indication: PSORIASIS
     Dosage: UNK UNK, QWK
     Route: 065
     Dates: start: 2008, end: 2010
  2. HUMIRA [Suspect]
     Dosage: UNK
     Dates: start: 2009, end: 2009

REACTIONS (2)
  - Drug effect decreased [Recovered/Resolved]
  - Psoriasis [Not Recovered/Not Resolved]
